FAERS Safety Report 8275901-7 (Version None)
Quarter: 2012Q2

REPORT INFORMATION
  Report Type: 
  Country: None (occurrence: None)
  Receive Date: 20120412
  Receipt Date: 20120402
  Transmission Date: 20120825
  Serious: Yes (Other)
  Sender: FDA-Public Use
  Company Number: US-SANOFI-AVENTIS-2012SA022651

PATIENT
  Age: 82 Year
  Sex: Female

DRUGS (3)
  1. SOLOSTAR [Suspect]
  2. DIGOXIN [Suspect]
  3. LANTUS [Suspect]
     Route: 058

REACTIONS (3)
  - PNEUMONIA [None]
  - SYNCOPE [None]
  - TOXICITY TO VARIOUS AGENTS [None]
